FAERS Safety Report 6262680-8 (Version None)
Quarter: 2009Q3

REPORT INFORMATION
  Report Type: 
  Country: None (occurrence: None)
  Receive Date: 20090709
  Receipt Date: 20090702
  Transmission Date: 20100115
  Serious: Yes (Hospitalization)
  Sender: FDA-Public Use
  Company Number: US-GENENTECH-286247

PATIENT
  Sex: Male

DRUGS (5)
  1. BLINDED BEVACIZUMAB [Suspect]
     Indication: PROSTATE CANCER
     Dosage: 15 MG/KG, UNK
     Route: 042
     Dates: start: 20060329, end: 20060628
  2. BLINDED PLACEBO [Suspect]
     Indication: PROSTATE CANCER
     Dosage: 15 MG/KG, UNK
     Route: 042
     Dates: start: 20060329, end: 20060628
  3. PREDNISONE [Suspect]
     Indication: DRUG USE FOR UNKNOWN INDICATION
     Dosage: 5 MG, BID
     Route: 048
     Dates: start: 20060329, end: 20060628
  4. DEXAMETHASONE [Suspect]
     Indication: DRUG USE FOR UNKNOWN INDICATION
     Dosage: 8 MG, UNK
     Route: 048
     Dates: start: 20060329, end: 20060628
  5. DOCETAXEL [Suspect]
     Indication: PROSTATE CANCER
     Dosage: 75 MG/M2, UNK
     Route: 042
     Dates: start: 20060329, end: 20060628

REACTIONS (1)
  - ATRIOVENTRICULAR BLOCK COMPLETE [None]
